FAERS Safety Report 6634471-7 (Version None)
Quarter: 2010Q1

REPORT INFORMATION
  Report Type: 
  Country: None (occurrence: None)
  Receive Date: 20100311
  Receipt Date: 20100311
  Transmission Date: 20100710
  Serious: Yes (Life-Threatening, Hospitalization, Other)
  Sender: FDA-Public Use
  Company Number: None

PATIENT
  Sex: Female
  Weight: 65.7716 kg

DRUGS (5)
  1. LAMICTAL [Suspect]
     Indication: DEPRESSION
     Dosage: 5 MG SID ORAL 100 MG SID ORAL
     Route: 048
     Dates: start: 20091001
  2. LAMICTAL [Suspect]
     Indication: DEPRESSION
     Dosage: 5 MG SID ORAL 100 MG SID ORAL
     Route: 048
     Dates: start: 20091101
  3. LAMICTAL [Suspect]
     Indication: DEPRESSION
     Dosage: 5 MG SID ORAL 100 MG SID ORAL
     Route: 048
     Dates: start: 20091201
  4. CYMBALTA [Concomitant]
  5. DEPAKOTE [Concomitant]

REACTIONS (6)
  - APPARENT DEATH [None]
  - DIZZINESS [None]
  - FALL [None]
  - SUICIDAL BEHAVIOUR [None]
  - VISION BLURRED [None]
  - WITHDRAWAL SYNDROME [None]
